FAERS Safety Report 6103078-2 (Version None)
Quarter: 2009Q1

REPORT INFORMATION
  Report Type: 
  Country: None (occurrence: None)
  Receive Date: 20090305
  Receipt Date: 20090130
  Transmission Date: 20090719
  Serious: No
  Sender: FDA-Public Use
  Company Number: US-BAYER-200912234NA

PATIENT
  Sex: Male

DRUGS (2)
  1. AVELOX [Suspect]
     Indication: DRUG USE FOR UNKNOWN INDICATION
  2. PREDNISONE [Concomitant]

REACTIONS (3)
  - MYALGIA [None]
  - TENDON PAIN [None]
  - TENDONITIS [None]
